FAERS Safety Report 6451216-4 (Version None)
Quarter: 2009Q4

REPORT INFORMATION
  Report Type: 
  Country: None (occurrence: None)
  Receive Date: 20091123
  Receipt Date: 20091116
  Transmission Date: 20100525
  Serious: Yes (Hospitalization)
  Sender: FDA-Public Use
  Company Number: JP-PFIZER INC-2009276094

PATIENT
  Age: 52 Year
  Sex: Female
  Weight: 36 kg

DRUGS (6)
  1. ATARAX [Suspect]
     Dosage: 25 MG, DAILY
     Route: 048
     Dates: start: 20090823, end: 20090914
  2. MYSLEE [Suspect]
     Indication: INSOMNIA
     Dosage: 10 MG, DAILY
     Route: 048
     Dates: start: 20090824, end: 20090914
  3. ALLEGRA [Suspect]
     Dosage: 60 MG, 2X/DAY
     Route: 048
     Dates: start: 20090825, end: 20090914
  4. ZYRTEC [Suspect]
     Indication: DRUG RASH WITH EOSINOPHILIA AND SYSTEMIC SYMPTOMS
     Dosage: 10 MG, 2X/DAY
     Route: 048
     Dates: start: 20090827, end: 20090904
  5. FAMOTIDINE [Suspect]
     Indication: GASTRIC MUCOSAL LESION
     Dosage: 20 MG, DAILY
     Dates: start: 20090823, end: 20090902
  6. RINDERON [Concomitant]
     Dosage: UNK
     Route: 048
     Dates: start: 20090903, end: 20090915

REACTIONS (1)
  - HEPATITIS [None]
